FAERS Safety Report 19738698 (Version 1)
Quarter: 2021Q3

REPORT INFORMATION
  Report Type: Spontaneous
  Country: DE (occurrence: DE)
  Receive Date: 20210823
  Receipt Date: 20210823
  Transmission Date: 20211014
  Serious: Yes (Hospitalization, Other)
  Sender: FDA-Public Use
  Company Number: DE-MYLANLABS-2021M1054041

PATIENT
  Age: 75 Year
  Sex: Male

DRUGS (2)
  1. POVIDONE?IODINE. [Suspect]
     Active Substance: POVIDONE-IODINE
     Indication: INFECTION PROPHYLAXIS
     Dosage: UNK (EXPOSURE TIME 1 MIN)
     Route: 003
  2. PIPERACILLIN/TAZOBACTAM [Suspect]
     Active Substance: PIPERACILLIN SODIUM\TAZOBACTAM SODIUM
     Indication: PNEUMONIA ASPIRATION
     Dosage: UNK
     Route: 065

REACTIONS (6)
  - Clostridium difficile infection [Recovered/Resolved]
  - Device related infection [Recovered/Resolved]
  - Drug ineffective [Unknown]
  - Cardiac pacemaker removal [Recovered/Resolved]
  - Cardiac pacemaker replacement [Recovered/Resolved]
  - Endocarditis bacterial [Recovered/Resolved]
